FAERS Safety Report 9786501 (Version 1)
Quarter: 2013Q4

REPORT INFORMATION
  Report Type: Spontaneous
  Country: TW (occurrence: TW)
  Receive Date: 20131227
  Receipt Date: 20131227
  Transmission Date: 20140711
  Serious: Yes (Hospitalization)
  Sender: FDA-Public Use
  Company Number: TW-KOWA-2013S1002194

PATIENT
  Age: 35 Year
  Sex: Male

DRUGS (3)
  1. LIVALO [Suspect]
     Indication: HYPERCHOLESTEROLAEMIA
     Route: 048
     Dates: start: 20130522, end: 20130708
  2. DIPYRIDAMOLE [Concomitant]
     Route: 048
  3. LACIDIPINE [Concomitant]
     Route: 048

REACTIONS (2)
  - Hepatitis acute [Recovering/Resolving]
  - Jaundice [Recovering/Resolving]
